FAERS Safety Report 5671980-1 (Version None)
Quarter: 2008Q1

REPORT INFORMATION
  Report Type: 
  Country: None (occurrence: None)
  Receive Date: 20080314
  Receipt Date: 20080227
  Transmission Date: 20080703
  Serious: Yes (Other)
  Sender: FDA-Public Use
  Company Number: 2008EU000409

PATIENT
  Age: 51 Year
  Sex: Female

DRUGS (5)
  1. TACROLIMUS [Suspect]
     Indication: LIVER TRANSPLANT
  2. GLUCOCORTICOIDS() [Suspect]
     Indication: LIVER TRANSPLANT
  3. VALGANCICLOVIR HCL [Suspect]
     Indication: PROPHYLAXIS
     Dosage: 900 MG, BID,
  4. SULFAMETHOXAZOLE AND TRIMETHOPRIM [Concomitant]
  5. GANCICLOVIR [Concomitant]

REACTIONS (14)
  - ARTHRALGIA [None]
  - BLINDNESS UNILATERAL [None]
  - COLITIS [None]
  - CYTOMEGALOVIRUS CHORIORETINITIS [None]
  - CYTOMEGALOVIRUS SYNDROME [None]
  - IMMUNE RECONSTITUTION SYNDROME [None]
  - IRIDOCYCLITIS [None]
  - LEUKOPENIA [None]
  - LYMPHOCYTE COUNT INCREASED [None]
  - RENAL FAILURE [None]
  - RETINAL DETACHMENT [None]
  - RETINAL HAEMORRHAGE [None]
  - THROMBOCYTOPENIA [None]
  - VITRITIS [None]
